FAERS Safety Report 8959242 (Version 2)
Quarter: 2013Q1

REPORT INFORMATION
  Report Type: Spontaneous
  Country: US (occurrence: None)
  Receive Date: 20121128
  Receipt Date: 20130311
  Transmission Date: 20140127
  Serious: Yes (Hospitalization, Other)
  Sender: FDA-Public Use
  Company Number: AUR-APL-2012-05027

PATIENT
  Age: 76 Year
  Sex: Male

DRUGS (13)
  1. CLOPIDOGREL [Suspect]
     Indication: ANTIPLATELET THERAPY
  2. ASPIRIN (ACETYLSALICYLIC ACID) [Suspect]
     Indication: ANTIPLATELET THERAPY
  3. CARVEDILOL (VARVEDILOL) [Concomitant]
  4. BENAZEPRIL (BENAZEPRIL) [Concomitant]
  5. ROSUVASTATIN (ROSUVASTATIN) [Concomitant]
  6. GLIPIZIDE (GLIPIZIDE) [Concomitant]
  7. ALLOPURINOL [Concomitant]
  8. TAMSULOSIN (TAMSULOSIN) [Concomitant]
  9. OMEPRAZOLE (OMEPRAZOLE) [Concomitant]
  10. PREDNISONE (PREDNISONE) [Concomitant]
  11. FLUTICASONE W/SALMETEROL (GALENIC /FLUTICASONE/SALMERTEROL) [Concomitant]
  12. ALBUTEROL SULFATE / IPRATROPIUM BROMIDE (SALBUTAMOL W/IPRATROPIUM) [Concomitant]
  13. TIOTROPIUM (TIOTROPIUM) [Concomitant]

REACTIONS (7)
  - Rhonchi [None]
  - Oedema [None]
  - Oedema peripheral [None]
  - White blood cell count increased [None]
  - Haemoglobin decreased [None]
  - Hepatic haematoma [None]
  - Hepatic haemorrhage [None]
